FAERS Safety Report 18103054 (Version 1)
Quarter: 2020Q3

REPORT INFORMATION
  Report Type: Spontaneous
  Country: US (occurrence: US)
  Receive Date: 20200731
  Receipt Date: 20200731
  Transmission Date: 20201103
  Serious: Yes (Hospitalization)
  Sender: FDA-Public Use
  Company Number: None

PATIENT
  Age: 80 Year
  Sex: Female

DRUGS (9)
  1. PREDNISONE. [Concomitant]
     Active Substance: PREDNISONE
  2. PANTOPRAZOLE [Concomitant]
     Active Substance: PANTOPRAZOLE
  3. TIKOSYN [Suspect]
     Active Substance: DOFETILIDE
     Indication: RESPIRATORY DISORDER
     Dosage: ?          OTHER STRENGTH:250UGM;OTHER DOSE:500 UGM;?
     Route: 048
     Dates: start: 20190711
  4. PRAVASTATIN. [Concomitant]
     Active Substance: PRAVASTATIN
  5. ELIQUIS [Concomitant]
     Active Substance: APIXABAN
  6. LOSARTAN. [Concomitant]
     Active Substance: LOSARTAN
  7. METOPROLOL. [Concomitant]
     Active Substance: METOPROLOL
  8. AMLODIPINE [Concomitant]
     Active Substance: AMLODIPINE BESYLATE
  9. COLCHICINE. [Concomitant]
     Active Substance: COLCHICINE

REACTIONS (1)
  - Cardiac pacemaker insertion [None]

NARRATIVE: CASE EVENT DATE: 20200610
